FAERS Safety Report 6742491-7 (Version None)
Quarter: 2010Q2

REPORT INFORMATION
  Report Type: 
  Country: None (occurrence: None)
  Receive Date: 20100526
  Receipt Date: 20100517
  Transmission Date: 20101027
  Serious: Yes (Hospitalization, Other)
  Sender: FDA-Public Use
  Company Number: US-ROCHE-680668

PATIENT
  Age: 67 Year
  Sex: Male

DRUGS (21)
  1. BEVACIZUMAB [Suspect]
     Indication: GASTROOESOPHAGEAL CANCER
     Route: 042
     Dates: start: 20091120, end: 20091211
  2. BEVACIZUMAB [Suspect]
     Route: 042
     Dates: start: 20100108, end: 20100122
  3. BEVACIZUMAB [Suspect]
     Route: 042
     Dates: start: 20100217, end: 20100219
  4. BEVACIZUMAB [Suspect]
     Route: 042
     Dates: start: 20100219
  5. CISPLATIN [Suspect]
     Indication: GASTROOESOPHAGEAL CANCER
     Dosage: FREQUENCY: 2 WEEKS ON, 1 OFF
     Route: 065
     Dates: start: 20091120, end: 20091218
  6. CISPLATIN [Suspect]
     Route: 065
     Dates: start: 20100108, end: 20100129
  7. CISPLATIN [Suspect]
     Route: 065
     Dates: start: 20100217, end: 20100226
  8. CISPLATIN [Suspect]
     Route: 065
     Dates: start: 20100326
  9. IRINOTECAN [Suspect]
     Indication: GASTROOESOPHAGEAL CANCER
     Dosage: FREQUENCY: 2 WEEKS ON, 1 WEEK OFF
     Route: 065
     Dates: start: 20091120, end: 20091218
  10. IRINOTECAN [Suspect]
     Route: 065
     Dates: start: 20100108, end: 20100129
  11. IRINOTECAN [Suspect]
     Route: 065
     Dates: start: 20100217, end: 20100226
  12. IRINOTECAN [Suspect]
     Route: 065
     Dates: start: 20100326
  13. ASPIRIN [Concomitant]
  14. ATIVAN [Concomitant]
  15. CODEINE SULFATE [Concomitant]
  16. COLACE [Concomitant]
  17. COMPAZINE [Concomitant]
  18. DECADRON [Concomitant]
  19. GLYCOPYRROLATE [Concomitant]
  20. IMODIUM [Concomitant]
  21. LOVENOX [Concomitant]

REACTIONS (3)
  - FEBRILE NEUTROPENIA [None]
  - PNEUMONIA [None]
  - PULMONARY EMBOLISM [None]
